FAERS Safety Report 5154558-8 (Version None)
Quarter: 2006Q4

REPORT INFORMATION
  Report Type: 
  Country: None (occurrence: None)
  Receive Date: 20061114
  Receipt Date: 20061027
  Transmission Date: 20070319
  Serious: Yes (Disabling)
  Sender: FDA-Public Use
  Company Number: 2006-273

PATIENT
  Age: 45 Year
  Weight: 72 kg

DRUGS (1)
  1. CITALOPRAM HYDROBROMIDE [Suspect]
     Indication: DEPRESSION
     Dosage: 10 MG DAILY
     Dates: start: 20060908, end: 20061001

REACTIONS (3)
  - RASH [None]
  - SWELLING [None]
  - URTICARIA [None]
